FAERS Safety Report 12970745 (Version 2)
Quarter: 2016Q4

REPORT INFORMATION
  Report Type: Spontaneous
  Country: GB (occurrence: GB)
  Receive Date: 20161123
  Receipt Date: 20161201
  Transmission Date: 20170207
  Serious: Yes (Hospitalization)
  Sender: FDA-Public Use
  Company Number: GB-SA-2016SA212762

PATIENT
  Age: 49 Year
  Sex: Female

DRUGS (4)
  1. FLUOROURACIL. [Concomitant]
     Active Substance: FLUOROURACIL
     Indication: BREAST CANCER
     Route: 042
     Dates: start: 201606
  2. EPIRUBICIN [Concomitant]
     Active Substance: EPIRUBICIN
     Indication: BREAST CANCER
     Route: 042
     Dates: start: 201606
  3. CYCLOPHOSPHAMIDE. [Concomitant]
     Active Substance: CYCLOPHOSPHAMIDE
     Indication: BREAST CANCER
     Route: 042
     Dates: start: 201606
  4. DOCETAXEL. [Suspect]
     Active Substance: DOCETAXEL
     Indication: BREAST CANCER
     Route: 065
     Dates: start: 201606

REACTIONS (7)
  - Haemolysis [Recovering/Resolving]
  - Epistaxis [Recovering/Resolving]
  - Malaise [Recovering/Resolving]
  - Renal impairment [Recovering/Resolving]
  - Anaemia [Recovering/Resolving]
  - Urine output decreased [Recovering/Resolving]
  - Haemolytic uraemic syndrome [Recovered/Resolved]
